FAERS Safety Report 9735616 (Version 1)
Quarter: 2013Q4

REPORT INFORMATION
  Report Type: Spontaneous
  Country: US (occurrence: US)
  Receive Date: 20131206
  Receipt Date: 20131206
  Transmission Date: 20140711
  Serious: Yes (Other)
  Sender: FDA-Public Use
  Company Number: PHEH2013US024985

PATIENT
  Sex: Male

DRUGS (8)
  1. EXFORGE HCT [Suspect]
     Dosage: 1 DF (320MG VALS/ 5MG AMLO/ UNKNOWN HYDR) QD
  2. EXFORGE HCT [Suspect]
     Dosage: UNK UKN, UNK
  3. CIALIS [Concomitant]
     Dosage: 5 MG, QD
  4. WARFARIN [Concomitant]
     Dosage: 1 DF (5MG), ON MONDAY, WEDNESDAY, FRIDAY AND HALF TABLET THE OTHER DAYS
  5. FUROSEMIDE [Concomitant]
     Dosage: 20 MG, QD
  6. ESCITALOPRAM [Concomitant]
     Dosage: 20 MG, QD
  7. BABY ASPIRIN [Concomitant]
     Dosage: 81 MG, QD
  8. LASIX [Concomitant]
     Dosage: UNK UKN, UNK

REACTIONS (20)
  - Fall [Unknown]
  - Fracture [Unknown]
  - Joint dislocation [Unknown]
  - Hepatitis C [Unknown]
  - Hepatic steatosis [Unknown]
  - Hepatic cyst [Unknown]
  - Nervous system disorder [Unknown]
  - Gait disturbance [Unknown]
  - Arthritis [Unknown]
  - Oropharyngeal pain [Unknown]
  - Feeling abnormal [Unknown]
  - Musculoskeletal stiffness [Unknown]
  - Dysphagia [Unknown]
  - Atrial fibrillation [Unknown]
  - Blood pressure decreased [Unknown]
  - Anxiety [Unknown]
  - Paraesthesia [Unknown]
  - Oedema peripheral [Unknown]
  - Muscle spasms [Unknown]
  - Insomnia [Unknown]
